FAERS Safety Report 6851456-6 (Version None)
Quarter: 2010Q3

REPORT INFORMATION
  Report Type: 
  Country: None (occurrence: None)
  Receive Date: 20100717
  Receipt Date: 20080226
  Transmission Date: 20110219
  Serious: Yes (Life-Threatening, Hospitalization, Other)
  Sender: FDA-Public Use
  Company Number: US-PFIZER INC-2008004938

PATIENT
  Sex: Male
  Weight: 113.4 kg

DRUGS (3)
  1. CHANTIX [Suspect]
     Indication: SMOKING CESSATION THERAPY
     Dates: start: 20071101, end: 20080105
  2. ACETYLSALICYLIC ACID [Suspect]
     Indication: CARDIOVASCULAR EVENT PROPHYLAXIS
     Dates: start: 20060101, end: 20080105
  3. ALOES [Concomitant]
     Dates: start: 20070801, end: 20080101

REACTIONS (1)
  - GASTROINTESTINAL HAEMORRHAGE [None]
